FAERS Safety Report 5615671-1 (Version None)
Quarter: 2008Q1

REPORT INFORMATION
  Report Type: 
  Country: None (occurrence: None)
  Receive Date: 20080206
  Receipt Date: 20080131
  Transmission Date: 20080703
  Serious: Yes (Other)
  Sender: FDA-Public Use
  Company Number: US-MERCK-97010228

PATIENT
  Age: 71 Year
  Sex: Female

DRUGS (9)
  1. CALCIUM SUPPLEMENT (COMPOSITION UNSPECIFIED) [Concomitant]
     Route: 065
  2. GLUCOSAMINE [Concomitant]
     Route: 048
  3. CHONDROITIN SULFATE [Concomitant]
     Route: 048
  4. ACCUPRIL [Concomitant]
     Route: 065
  5. ZOCOR [Concomitant]
     Route: 048
     Dates: start: 20000801
  6. FOSAMAX [Suspect]
     Indication: OSTEOPOROSIS
     Route: 048
     Dates: start: 19961201
  7. ESTRADERM [Concomitant]
     Route: 065
     Dates: end: 19980101
  8. PROVERA [Concomitant]
     Route: 065
  9. PRAVACHOL [Concomitant]
     Indication: HYPERCHOLESTEROLAEMIA
     Route: 065

REACTIONS (5)
  - ARTHROPATHY [None]
  - BONE DISORDER [None]
  - DYSGEUSIA [None]
  - ONYCHOCLASIS [None]
  - THERAPEUTIC RESPONSE DECREASED [None]
